FAERS Safety Report 25240176 (Version 1)
Quarter: 2025Q2

REPORT INFORMATION
  Report Type: Spontaneous
  Country: JP (occurrence: JP)
  Receive Date: 20250425
  Receipt Date: 20250425
  Transmission Date: 20250716
  Serious: Yes (Other)
  Sender: PFIZER
  Company Number: JP-PFIZER INC-PV202500048805

PATIENT
  Sex: Female

DRUGS (2)
  1. IBRANCE [Suspect]
     Active Substance: PALBOCICLIB
     Dosage: 100 MG, DAILY
     Route: 048
     Dates: start: 202401, end: 20250303
  2. FASLODEX [Suspect]
     Active Substance: FULVESTRANT
     Dates: start: 202401, end: 20250303

REACTIONS (1)
  - Stress fracture [Unknown]

NARRATIVE: CASE EVENT DATE: 20250303
